FAERS Safety Report 9330232 (Version 2)
Quarter: 2013Q4

REPORT INFORMATION
  Report Type: Spontaneous
  Country: US (occurrence: US)
  Receive Date: 20130604
  Receipt Date: 20131127
  Transmission Date: 20140711
  Serious: Yes (Hospitalization, Other)
  Sender: FDA-Public Use
  Company Number: US-PFIZER INC-2013166788

PATIENT
  Age: 47 Year
  Sex: Female
  Weight: 110 kg

DRUGS (4)
  1. AMLODIPINE BESILATE [Suspect]
     Dosage: 70 IU, SINGLE (AT LEAST)
     Route: 048
  2. AMLODIPINE BESILATE [Suspect]
     Dosage: 5 MG, 1X/DAY
     Route: 048
  3. ZIPRASIDONE [Concomitant]
     Dosage: 60 MG, 1X/DAY
     Route: 048
  4. PREGABALIN [Concomitant]
     Dosage: 150 MG, 1X/DAY
     Route: 048

REACTIONS (6)
  - Overdose [Recovered/Resolved]
  - Tachycardia [Recovered/Resolved]
  - Hypotension [Recovered/Resolved]
  - Shock [Recovered/Resolved]
  - Haemodynamic instability [Recovered/Resolved]
  - Metabolic acidosis [Recovered/Resolved]
